FAERS Safety Report 4499100-X (Version None)
Quarter: 2004Q4

REPORT INFORMATION
  Report Type: 
  Country: None (occurrence: None)
  Receive Date: 20041111
  Receipt Date: 20041101
  Transmission Date: 20050328
  Serious: Yes (Life-Threatening, Hospitalization)
  Sender: FDA-Public Use
  Company Number: US-MERCK-0411USA00310

PATIENT
  Age: 74 Year
  Sex: Female

DRUGS (1)
  1. VIOXX [Suspect]
     Indication: SURGERY
     Route: 048
     Dates: start: 20000901, end: 20020401

REACTIONS (2)
  - HIP FRACTURE [None]
  - MYOCARDIAL INFARCTION [None]
